FAERS Safety Report 4700183-X (Version None)
Quarter: 2005Q2

REPORT INFORMATION
  Report Type: 
  Country: None (occurrence: None)
  Receive Date: 20050627
  Receipt Date: 20050621
  Transmission Date: 20051028
  Serious: Yes (Other)
  Sender: FDA-Public Use
  Company Number: 200515629GDDC

PATIENT
  Sex: Male

DRUGS (1)
  1. NICODERM CQ [Suspect]
     Route: 062
     Dates: start: 20040901, end: 20040901

REACTIONS (3)
  - FEELING ABNORMAL [None]
  - MANIA [None]
  - NIGHTMARE [None]
